FAERS Safety Report 13494677 (Version 2)
Quarter: 2017Q2

REPORT INFORMATION
  Report Type: Report from Study
  Country: None (occurrence: US)
  Receive Date: 20170428
  Receipt Date: 20170503
  Transmission Date: 20170830
  Serious: Yes (Other)
  Sender: FDA-Public Use
  Company Number: US-ABBVIE-17K-163-1952160-00

PATIENT
  Sex: Female

DRUGS (1)
  1. HUMIRA [Suspect]
     Active Substance: ADALIMUMAB
     Indication: CROHN^S DISEASE
     Route: 058
     Dates: start: 20100217, end: 20121224

REACTIONS (2)
  - Oesophageal obstruction [Recovered/Resolved]
  - Oesophageal obstruction [Recovered/Resolved]

NARRATIVE: CASE EVENT DATE: 2015
